FAERS Safety Report 16944405 (Version 8)
Quarter: 2021Q4

REPORT INFORMATION
  Report Type: Report from Study
  Country: GB (occurrence: GB)
  Receive Date: 20191022
  Receipt Date: 20211029
  Transmission Date: 20220303
  Serious: Yes (Hospitalization, Other)
  Sender: FDA-Public Use
  Company Number: GB-UCBSA-2019002052

PATIENT
  Age: 27 Year
  Sex: Female

DRUGS (9)
  1. METHOTREXATE [Suspect]
     Active Substance: METHOTREXATE
     Indication: Product used for unknown indication
     Dosage: UNK (1ST TRIMESTER)
     Route: 065
  2. CIMZIA [Suspect]
     Active Substance: CERTOLIZUMAB PEGOL
     Indication: Psoriatic arthropathy
     Dosage: 200 MG, CYCLIC ((EVERY 2 WEEKS))
     Route: 058
     Dates: start: 20200815, end: 2020
  3. CIMZIA [Suspect]
     Active Substance: CERTOLIZUMAB PEGOL
     Indication: Rheumatoid arthritis
     Dosage: 200 MG, CYCLIC (200 MILLIGRAM, EV 2 WEEKS(QOW) (EVERY 2 WEEKS))
     Route: 058
     Dates: start: 20180508
  4. CIMZIA [Suspect]
     Active Substance: CERTOLIZUMAB PEGOL
     Dosage: 200 MG, CYCLIC ((EVERY 2 WEEKS))
     Route: 058
  5. CIMZIA [Suspect]
     Active Substance: CERTOLIZUMAB PEGOL
     Dosage: 200 MG, CYCLIC ((EVERY 2 WEEKS))
     Route: 058
     Dates: start: 20180430
  6. FOLIC ACID [Concomitant]
     Active Substance: FOLIC ACID
     Indication: Product used for unknown indication
     Route: 065
  7. ERGOCALCIFEROL [Concomitant]
     Active Substance: ERGOCALCIFEROL
     Indication: Product used for unknown indication
  8. CHOLECALCIFEROL [Concomitant]
     Active Substance: CHOLECALCIFEROL
     Indication: Product used for unknown indication
     Route: 065
  9. ERGOCALCIFEROL [Concomitant]
     Active Substance: ERGOCALCIFEROL
     Indication: Product used for unknown indication
     Route: 065

REACTIONS (26)
  - Headache [Unknown]
  - Infection [Not Recovered/Not Resolved]
  - Ear infection [Recovering/Resolving]
  - Product dose omission issue [Unknown]
  - Illness [Unknown]
  - Poor quality sleep [Unknown]
  - Cough [Unknown]
  - Bacterial vaginosis [Unknown]
  - Candida infection [Unknown]
  - Emotional disorder [Unknown]
  - Skin exfoliation [Unknown]
  - Alopecia [Unknown]
  - Arthritis [Unknown]
  - Maternal exposure during breast feeding [Unknown]
  - Eating disorder [Unknown]
  - Inappropriate schedule of product administration [Unknown]
  - Diarrhoea [Recovering/Resolving]
  - Nasopharyngitis [Recovering/Resolving]
  - Oropharyngeal pain [Recovering/Resolving]
  - Maternal exposure before pregnancy [Recovered/Resolved]
  - Infection [Unknown]
  - Maternal exposure before pregnancy [Unknown]
  - Inflammation [Unknown]
  - Illness [Unknown]
  - Skin exfoliation [Unknown]
  - Maternal exposure during pregnancy [Unknown]

NARRATIVE: CASE EVENT DATE: 20181201
